FAERS Safety Report 14563921 (Version 1)
Quarter: 2018Q1

REPORT INFORMATION
  Report Type: Spontaneous
  Country: US (occurrence: US)
  Receive Date: 20180222
  Receipt Date: 20180222
  Transmission Date: 20180509
  Serious: Yes (Hospitalization, Other)
  Sender: FDA-Public Use
  Company Number: None

PATIENT
  Age: 63 Year
  Sex: Male
  Weight: 81.19 kg

DRUGS (13)
  1. ZINC. [Concomitant]
     Active Substance: ZINC
  2. COZAAR [Suspect]
     Active Substance: LOSARTAN POTASSIUM
     Indication: HYPERTENSION
     Route: 048
     Dates: start: 20180112, end: 20180203
  3. VIAGRA [Concomitant]
     Active Substance: SILDENAFIL CITRATE
  4. NIACIN. [Concomitant]
     Active Substance: NIACIN
  5. VINPOCETINE [Concomitant]
     Active Substance: VINPOCETINE
  6. VIT K2 [Concomitant]
  7. CALCIUM [Concomitant]
     Active Substance: CALCIUM
  8. IRON [Concomitant]
     Active Substance: IRON
  9. VITAMIN C [Concomitant]
     Active Substance: ASCORBIC ACID
  10. OMEGA 3 [Concomitant]
     Active Substance: OMEGA-3 FATTY ACIDS
  11. VITAMIN D3 [Concomitant]
     Active Substance: CHOLECALCIFEROL
  12. PROBIOTIC [Concomitant]
     Active Substance: PROBIOTICS NOS
  13. MAGNESIUM [Concomitant]
     Active Substance: MAGNESIUM

REACTIONS (1)
  - Myocardial infarction [None]

NARRATIVE: CASE EVENT DATE: 20180202
